FAERS Safety Report 5514302-9 (Version None)
Quarter: 2007Q4

REPORT INFORMATION
  Report Type: 
  Country: None (occurrence: None)
  Receive Date: 20071113
  Receipt Date: 20071105
  Transmission Date: 20080405
  Serious: Yes (Hospitalization)
  Sender: FDA-Public Use
  Company Number: US-MERCK-0706USA03764

PATIENT
  Age: 63 Year
  Sex: Female

DRUGS (3)
  1. FOSAMAX [Suspect]
     Indication: OSTEOPENIA
     Route: 048
     Dates: start: 20050125, end: 20060406
  2. PREMARIN [Concomitant]
     Indication: HORMONE THERAPY
     Route: 065
     Dates: start: 19991115
  3. PROTONIX [Concomitant]
     Route: 065

REACTIONS (8)
  - BACTERIAL INFECTION [None]
  - DIVERTICULUM [None]
  - LARGE INTESTINAL ULCER HAEMORRHAGE [None]
  - ORAL INFECTION [None]
  - PAIN IN JAW [None]
  - PERIODONTITIS [None]
  - RECTAL POLYP [None]
  - TOOTH LOSS [None]
